FAERS Safety Report 13460853 (Version 1)
Quarter: 2017Q2

REPORT INFORMATION
  Report Type: Spontaneous
  Country: US (occurrence: US)
  Receive Date: 20170419
  Receipt Date: 20170419
  Transmission Date: 20170830
  Serious: Yes (Hospitalization)
  Sender: FDA-Public Use
  Company Number: None

PATIENT
  Age: 49 Year
  Sex: Female

DRUGS (3)
  1. PREDNISONE. [Concomitant]
     Active Substance: PREDNISONE
  2. LEVETIRACETAM. [Concomitant]
     Active Substance: LEVETIRACETAM
  3. ORENCIA [Suspect]
     Active Substance: ABATACEPT
     Indication: RHEUMATOID ARTHRITIS
     Dosage: 125MG/ML WEEKLY SUBCUTANEOUSLY
     Route: 058
     Dates: start: 20161013

REACTIONS (1)
  - Viral infection [None]
